FAERS Safety Report 10524165 (Version 4)
Quarter: 2015Q2

REPORT INFORMATION
  Report Type: Report from Study
  Country: US (occurrence: US)
  Receive Date: 20141017
  Receipt Date: 20150617
  Transmission Date: 20150821
  Serious: Yes (Death, Hospitalization, Other)
  Sender: FDA-Public Use
  Company Number: US-JNJFOC-20141003065

PATIENT
  Age: 86 Year
  Sex: Female
  Weight: 51 kg

DRUGS (32)
  1. IMBRUVICA [Suspect]
     Active Substance: IBRUTINIB
     Indication: THERAPY NAIVE
     Route: 048
     Dates: start: 20150420
  2. PRILOSEC [Concomitant]
     Active Substance: OMEPRAZOLE MAGNESIUM
  3. SPIRIVA [Concomitant]
     Active Substance: TIOTROPIUM BROMIDE MONOHYDRATE
  4. MYRBETRIQ [Concomitant]
     Active Substance: MIRABEGRON
  5. THERAGRAN [Concomitant]
     Active Substance: VITAMINS
     Route: 048
  6. ATIVAN [Concomitant]
     Active Substance: LORAZEPAM
  7. ADVAIR HFA [Concomitant]
     Active Substance: FLUTICASONE PROPIONATE\SALMETEROL XINAFOATE
  8. COLACE [Concomitant]
     Active Substance: DOCUSATE SODIUM
     Route: 048
  9. FERROUS SULFATE [Concomitant]
     Active Substance: FERROUS SULFATE\FERROUS SULFATE, DRIED
     Route: 048
  10. ZANTAC [Concomitant]
     Active Substance: RANITIDINE HYDROCHLORIDE
  11. IMBRUVICA [Suspect]
     Active Substance: IBRUTINIB
     Indication: THERAPY NAIVE
     Route: 048
     Dates: start: 20140221, end: 2014
  12. NYSTOP [Concomitant]
     Active Substance: NYSTATIN
  13. PERCOCET [Concomitant]
     Active Substance: ACETAMINOPHEN\OXYCODONE HYDROCHLORIDE
     Route: 048
  14. IMBRUVICA [Suspect]
     Active Substance: IBRUTINIB
     Indication: CHRONIC LYMPHOCYTIC LEUKAEMIA
     Route: 048
     Dates: start: 20150420
  15. ZYLOPRIM [Concomitant]
     Active Substance: ALLOPURINOL
     Indication: GOUT
     Route: 048
  16. FLONASE [Concomitant]
     Active Substance: FLUTICASONE PROPIONATE
  17. FOLVITE [Concomitant]
     Active Substance: FOLIC ACID
  18. PROTONIX [Concomitant]
     Active Substance: PANTOPRAZOLE SODIUM
     Indication: GASTROOESOPHAGEAL REFLUX DISEASE
  19. PROVENTIL [Concomitant]
     Active Substance: ALBUTEROL
  20. SINGULAIR [Concomitant]
     Active Substance: MONTELUKAST SODIUM
  21. MIRALAX [Concomitant]
     Active Substance: POLYETHYLENE GLYCOL 3350
  22. DELTASONE [Concomitant]
     Active Substance: PREDNISONE
  23. LASIX [Concomitant]
     Active Substance: FUROSEMIDE
  24. ATROVENT [Concomitant]
     Active Substance: IPRATROPIUM BROMIDE
  25. IMBRUVICA [Suspect]
     Active Substance: IBRUTINIB
     Indication: THERAPY NAIVE
     Route: 048
     Dates: end: 20150407
  26. RITUXAN [Concomitant]
     Active Substance: RITUXIMAB
  27. ZOVIRAX [Concomitant]
     Active Substance: ACYCLOVIR
  28. IMBRUVICA [Suspect]
     Active Substance: IBRUTINIB
     Indication: CHRONIC LYMPHOCYTIC LEUKAEMIA
     Route: 048
     Dates: start: 20140221, end: 2014
  29. IMBRUVICA [Suspect]
     Active Substance: IBRUTINIB
     Indication: CHRONIC LYMPHOCYTIC LEUKAEMIA
     Route: 048
     Dates: end: 20150407
  30. COZAAR [Concomitant]
     Active Substance: LOSARTAN POTASSIUM
     Indication: HYPERTENSION
     Route: 048
  31. KENALOG [Concomitant]
     Active Substance: TRIAMCINOLONE ACETONIDE
  32. MYCOSTATIN [Concomitant]
     Active Substance: NYSTATIN

REACTIONS (15)
  - Cough [Unknown]
  - Contusion [Unknown]
  - Femur fracture [Unknown]
  - Post procedural haemorrhage [Recovering/Resolving]
  - Haemoptysis [Unknown]
  - Bronchiectasis [Unknown]
  - Pain [Unknown]
  - Fall [Recovered/Resolved]
  - Leukocytosis [Recovering/Resolving]
  - Haematoma [Unknown]
  - Dehydration [Unknown]
  - Haemorrhagic anaemia [Recovering/Resolving]
  - Limb injury [Unknown]
  - Death [Fatal]
  - Vulvovaginal rash [Recovered/Resolved]

NARRATIVE: CASE EVENT DATE: 2014
